FAERS Safety Report 7334619-5 (Version None)
Quarter: 2011Q1

REPORT INFORMATION
  Report Type: 
  Country: None (occurrence: None)
  Receive Date: 20110307
  Receipt Date: 20110222
  Transmission Date: 20110831
  Serious: Yes (Other)
  Sender: FDA-Public Use
  Company Number: US-ELI_LILLY_AND_COMPANY-US201011002153

PATIENT
  Age: 23 Year
  Sex: Male

DRUGS (1)
  1. SYMBYAX [Suspect]
     Indication: HALLUCINATION, AUDITORY
     Dosage: 12/25 MG, EVERY HOUR OF SLEEP
     Route: 065
     Dates: start: 20100801, end: 20101012

REACTIONS (1)
  - OCULOGYRIC CRISIS [None]
